FAERS Safety Report 8308148-6 (Version None)
Quarter: 2012Q2

REPORT INFORMATION
  Report Type: 
  Country: None (occurrence: None)
  Receive Date: 20120424
  Receipt Date: 20120410
  Transmission Date: 20120825
  Serious: Yes (Hospitalization)
  Sender: FDA-Public Use
  Company Number: DE-ROCHE-1055865

PATIENT
  Sex: Female
  Weight: 78 kg

DRUGS (12)
  1. XELODA [Suspect]
     Indication: BREAST CANCER
     Dosage: DATE OF LAST DOSE PRIOR TO SAE 18/MAR/2012
     Route: 048
     Dates: start: 20120223, end: 20120405
  2. SIMVASTATIN [Concomitant]
     Route: 065
  3. BISOPROLOL FUMARATE [Concomitant]
     Route: 065
  4. METOCLOPRAMIDE HYDROCHLORIDE [Concomitant]
     Dosage: 20-20-20
  5. ASPIRIN [Concomitant]
     Route: 065
  6. RAMIPRIL [Concomitant]
     Route: 065
  7. LEVOTHYROXINE SODIUM [Concomitant]
     Route: 065
  8. FORTIMEL [Concomitant]
  9. XELODA [Suspect]
     Route: 048
     Dates: start: 20120412
  10. PACLITAXEL [Suspect]
     Route: 042
     Dates: start: 20120412
  11. IBUPROFEN [Concomitant]
     Dosage: PRN
  12. PACLITAXEL [Suspect]
     Indication: BREAST CANCER
     Dosage: DATE OF LAST DOSE PRIOR TO SAE 15/MAR/2012
     Route: 042
     Dates: start: 20120223, end: 20120405

REACTIONS (1)
  - INFECTION [None]
